FAERS Safety Report 11223375 (Version 1)
Quarter: 2015Q2

REPORT INFORMATION
  Report Type: Spontaneous
  Country: GB (occurrence: GB)
  Receive Date: 20150627
  Receipt Date: 20150627
  Transmission Date: 20150821
  Serious: Yes (Disabling)
  Sender: FDA-Public Use
  Company Number: GB-ACCORD-031560

PATIENT
  Age: 71 Year
  Sex: Female
  Weight: 65.37 kg

DRUGS (10)
  1. CHONDROITIN SULFATE/GLUCOSAMINE [Concomitant]
  2. OMEGA-3 FATTY ACIDS [Concomitant]
     Active Substance: OMEGA-3 FATTY ACIDS
     Dosage: 3,6,9
  3. AMITRIPTYLINE [Suspect]
     Active Substance: AMITRIPTYLINE
     Indication: ESSENTIAL TREMOR
     Route: 065
     Dates: start: 2003, end: 20150404
  4. LEVOTHYROXINE/LEVOTHYROXINE SODIUM [Concomitant]
     Indication: THYROID DISORDER
     Dosage: 25 MICROGRAM DAILY;
     Dates: start: 2004
  5. OMEGA-6 FATTY ACIDS [Concomitant]
     Active Substance: OMEGA-6 FATTY ACIDS
  6. ASCORBIC ACID/ERGOCALCIFEROL/FOLIC ACID/NICOTINAMIDE/PANTHENOL/RETINOL/RIBOFLAVIN/THIAMINE HYDROCHLO [Concomitant]
  7. NORTRIPTYLINE/NORTRIPTYLINE HYDROCHLORIDE [Suspect]
     Active Substance: NORTRIPTYLINE
     Indication: PRODUCT USED FOR UNKNOWN INDICATION
     Route: 065
  8. CALCICHEW-D3 [Concomitant]
     Active Substance: CALCIUM\CHOLECALCIFEROL
     Dosage: 535.7143 UNKNOWN DAILY;
     Dates: start: 2003
  9. OMEGA-9 FATTY ACIDS [Concomitant]
  10. RAMIPRIL. [Concomitant]
     Active Substance: RAMIPRIL
     Indication: BLOOD PRESSURE
     Dates: end: 201502

REACTIONS (7)
  - Diarrhoea [Recovered/Resolved]
  - Dysgeusia [Recovered/Resolved]
  - Malaise [Recovered/Resolved]
  - Oral mucosal blistering [Unknown]
  - Off label use [Unknown]
  - Abdominal pain [Recovered/Resolved]
  - Abdominal discomfort [Recovered/Resolved]

NARRATIVE: CASE EVENT DATE: 201412
